FAERS Safety Report 5830549-6 (Version None)
Quarter: 2008Q3

REPORT INFORMATION
  Report Type: 
  Country: None (occurrence: None)
  Receive Date: 20080801
  Receipt Date: 20070712
  Transmission Date: 20090109
  Serious: Yes (Other)
  Sender: FDA-Public Use
  Company Number: US-BRISTOL-MYERS SQUIBB COMPANY-13844527

PATIENT
  Sex: Female
  Weight: 56 kg

DRUGS (4)
  1. COUMADIN [Suspect]
     Indication: CEREBROVASCULAR ACCIDENT
  2. ESTROGENIC SUBSTANCE [Concomitant]
  3. IBUPROFEN [Concomitant]
  4. ACETAMINOPHEN [Concomitant]

REACTIONS (1)
  - INTERNATIONAL NORMALISED RATIO DECREASED [None]
